FAERS Safety Report 9894685 (Version 1)
Quarter: 2014Q1

REPORT INFORMATION
  Report Type: Spontaneous
  Country: KR (occurrence: KR)
  Receive Date: 20140213
  Receipt Date: 20140213
  Transmission Date: 20141002
  Serious: Yes (Other)
  Sender: FDA-Public Use
  Company Number: PHHY2014KR016794

PATIENT
  Age: 58 Year
  Sex: Male

DRUGS (4)
  1. 5-FLUOROURACIL [Suspect]
     Indication: GASTRIC CANCER RECURRENT
     Dosage: 400 MG/M2, UNK
     Route: 040
  2. 5-FLUOROURACIL [Suspect]
     Dosage: 2400 MG/M2, AS CONTINUOUS INFUSION OVER 43 H.
     Route: 042
  3. OXALIPLATIN [Concomitant]
     Indication: GASTRIC CANCER RECURRENT
     Dosage: 85 MG/M2, UNK
  4. LEUCOVORIN [Concomitant]
     Indication: GASTRIC CANCER RECURRENT
     Dosage: 200 MG/M2, UNK

REACTIONS (7)
  - Hyperammonaemic encephalopathy [Unknown]
  - Confusional state [Recovered/Resolved]
  - Agitation [Recovered/Resolved]
  - Mydriasis [Unknown]
  - Ammonia increased [Unknown]
  - Hypocapnia [Unknown]
  - Alkalosis [Unknown]
